FAERS Safety Report 13978407 (Version 1)
Quarter: 2017Q3

REPORT INFORMATION
  Report Type: Spontaneous
  Country: US (occurrence: US)
  Receive Date: 20170915
  Receipt Date: 20170915
  Transmission Date: 20171128
  Serious: Yes (Hospitalization)
  Sender: FDA-Public Use
  Company Number: US-LPDUSPRD-20160895

PATIENT
  Age: 49 Year
  Sex: Female

DRUGS (7)
  1. FLONASE [Concomitant]
     Active Substance: FLUTICASONE PROPIONATE
     Dosage: ONCE A DAY
     Route: 065
  2. ZEGRID [Concomitant]
     Dosage: DOSING UNCLEAR; ONCE A DAY
     Route: 065
  3. COLACE [Concomitant]
     Active Substance: DOCUSATE SODIUM
     Dosage: 100 MG ONCE A DAY
     Route: 065
  4. INJECTAFER [Suspect]
     Active Substance: FERRIC CARBOXYMALTOSE
     Dosage: 750 MG IN 100 ML  NS
     Route: 042
     Dates: start: 20160824, end: 20160824
  5. PANTASA [Concomitant]
     Dosage: 250 MG FOUR TIMES A DAY
     Route: 065
  6. CALCIUM [Concomitant]
     Active Substance: CALCIUM
     Dosage: 500 MG ONCE A DAY
     Route: 065
  7. PROAIR HFA [Concomitant]
     Active Substance: ALBUTEROL SULFATE
     Dosage: AS NEEDED
     Route: 065

REACTIONS (3)
  - Chest discomfort [Recovered/Resolved]
  - Nausea [Unknown]
  - Dyspnoea [Recovered/Resolved]

NARRATIVE: CASE EVENT DATE: 20160826
